FAERS Safety Report 19922646 (Version 3)
Quarter: 2021Q4

REPORT INFORMATION
  Report Type: Spontaneous
  Country: US (occurrence: US)
  Receive Date: 20211005
  Receipt Date: 20211118
  Transmission Date: 20220303
  Serious: Yes (Death, Hospitalization, Disabling, Other)
  Sender: FDA-Public Use
  Company Number: US-GILEAD-2021-0551320

PATIENT
  Age: 74 Year
  Sex: Male

DRUGS (1)
  1. TECARTUS [Suspect]
     Active Substance: BREXUCABTAGENE AUTOLEUCEL
     Indication: Mantle cell lymphoma
     Dosage: 68 ML
     Route: 042
     Dates: start: 20210817, end: 20210817

REACTIONS (5)
  - Haemorrhage intracranial [Fatal]
  - Immune effector cell-associated neurotoxicity syndrome [Unknown]
  - Acute kidney injury [Recovered/Resolved]
  - Encephalopathy [Not Recovered/Not Resolved]
  - Pyrexia [Recovered/Resolved]

NARRATIVE: CASE EVENT DATE: 20210801
